FAERS Safety Report 10937333 (Version 2)
Quarter: 2015Q2

REPORT INFORMATION
  Report Type: Spontaneous
  Country: US (occurrence: US)
  Receive Date: 20150321
  Receipt Date: 20150525
  Transmission Date: 20150821
  Serious: No
  Sender: FDA-Public Use
  Company Number: US-JNJFOC-20121203340

PATIENT
  Age: 78 Year
  Sex: Male

DRUGS (17)
  1. PERFOROMIST [Concomitant]
     Active Substance: FORMOTEROL FUMARATE DIHYDRATE
     Route: 065
  2. CARVEDILOL. [Concomitant]
     Active Substance: CARVEDILOL
     Route: 065
  3. SPIRIVA [Concomitant]
     Active Substance: TIOTROPIUM BROMIDE MONOHYDRATE
     Route: 065
  4. ALL OTHER THERAPEUTIC DRUG [Concomitant]
     Active Substance: UNSPECIFIED INGREDIENT
  5. SOTALOL. [Concomitant]
     Active Substance: SOTALOL
     Route: 065
  6. SIMVASTATIN. [Concomitant]
     Active Substance: SIMVASTATIN
     Route: 065
  7. VITAMIN B12 [Concomitant]
     Active Substance: CYANOCOBALAMIN
  8. VITAMIN D3 [Concomitant]
     Active Substance: CHOLECALCIFEROL
     Route: 065
  9. OMEGA 3 [Concomitant]
     Active Substance: OMEGA-3 FATTY ACIDS
     Route: 065
  10. STELARA [Suspect]
     Active Substance: USTEKINUMAB
     Indication: PSORIASIS
     Route: 058
     Dates: start: 20100422
  11. BORTEZOMIB [Concomitant]
     Active Substance: BORTEZOMIB
     Route: 065
  12. LISINOPRIL. [Concomitant]
     Active Substance: LISINOPRIL
  13. FUROSEMIDE. [Concomitant]
     Active Substance: FUROSEMIDE
     Route: 065
  14. ASPIRIN. [Concomitant]
     Active Substance: ASPIRIN
  15. NOVOLOG [Concomitant]
     Active Substance: INSULIN ASPART
     Route: 065
  16. LEVEMIR [Concomitant]
     Active Substance: INSULIN DETEMIR
  17. STELARA [Suspect]
     Active Substance: USTEKINUMAB
     Indication: PSORIASIS
     Route: 058
     Dates: start: 201212

REACTIONS (1)
  - CD8 lymphocytes decreased [Unknown]

NARRATIVE: CASE EVENT DATE: 20121120
